FAERS Safety Report 8812504 (Version 2)
Quarter: 2012Q4

REPORT INFORMATION
  Report Type: Report from Study
  Country: US (occurrence: US)
  Receive Date: 20120927
  Receipt Date: 20121017
  Transmission Date: 20130627
  Serious: Yes (Hospitalization)
  Sender: FDA-Public Use
  Company Number: US-JNJFOC-20120911104

PATIENT
  Age: 16 Year
  Sex: Male
  Weight: 66.2 kg

DRUGS (4)
  1. REMICADE [Suspect]
     Indication: CROHN^S DISEASE
     Route: 042
     Dates: start: 20120302
  2. 5-ASA [Concomitant]
     Route: 048
  3. CARAFATE [Concomitant]
  4. OMEPRAZOLE [Concomitant]

REACTIONS (1)
  - Crohn^s disease [Recovered/Resolved]
